FAERS Safety Report 15216198 (Version 1)
Quarter: 2018Q3

REPORT INFORMATION
  Report Type: Spontaneous
  Country: FR (occurrence: FR)
  Receive Date: 20180730
  Receipt Date: 20180730
  Transmission Date: 20181010
  Serious: Yes (Other)
  Sender: FDA-Public Use
  Company Number: PHHY2018FR056632

PATIENT
  Age: 71 Year
  Sex: Male
  Weight: 62 kg

DRUGS (5)
  1. LAMOTRIGINE. [Suspect]
     Active Substance: LAMOTRIGINE
     Indication: EPILEPSY
     Dosage: 25 MG, QD
     Route: 048
     Dates: start: 20180420, end: 20180430
  2. INEGY [Concomitant]
     Active Substance: EZETIMIBE\SIMVASTATIN
     Indication: PRODUCT USED FOR UNKNOWN INDICATION
     Route: 065
  3. OXAZEPAM. [Concomitant]
     Active Substance: OXAZEPAM
     Indication: PRODUCT USED FOR UNKNOWN INDICATION
     Route: 065
  4. BISOPROLOL [Concomitant]
     Active Substance: BISOPROLOL
     Indication: PRODUCT USED FOR UNKNOWN INDICATION
     Route: 065
  5. MEMANTINE. [Concomitant]
     Active Substance: MEMANTINE
     Indication: PRODUCT USED FOR UNKNOWN INDICATION
     Route: 065

REACTIONS (1)
  - Oedema [Recovered/Resolved]

NARRATIVE: CASE EVENT DATE: 20180426
